FAERS Safety Report 15674563 (Version 1)
Quarter: 2018Q4

REPORT INFORMATION
  Report Type: Spontaneous
  Country: US (occurrence: US)
  Receive Date: 20181128
  Receipt Date: 20181128
  Transmission Date: 20190205
  Serious: Yes (Other)
  Sender: FDA-Public Use
  Company Number: None

PATIENT
  Age: 18 Year
  Sex: Female
  Weight: 71.1 kg

DRUGS (1)
  1. HOMEOPATHIC CALM DROPS [Suspect]
     Active Substance: HOMEOPATHICS
     Indication: ANXIETY
     Dosage: ?          QUANTITY:1 LOZENGES;OTHER FREQUENCY:ONE EVERY 30 MIN;?
     Route: 048
     Dates: start: 20180928, end: 20180928

REACTIONS (5)
  - Oropharyngeal pain [None]
  - Product complaint [None]
  - Product use complaint [None]
  - Throat irritation [None]
  - Product packaging issue [None]

NARRATIVE: CASE EVENT DATE: 20180928
